FAERS Safety Report 16395745 (Version 1)
Quarter: 2019Q2

REPORT INFORMATION
  Report Type: Spontaneous
  Country: QA (occurrence: QA)
  Receive Date: 20190605
  Receipt Date: 20190605
  Transmission Date: 20190711
  Serious: Yes (Hospitalization, Disabling)
  Sender: FDA-Public Use
  Company Number: QA-ACELLA PHARMACEUTICALS, LLC-2067823

PATIENT
  Age: 26 Year
  Sex: Male

DRUGS (1)
  1. PHENYTOIN SODIUM. [Suspect]
     Active Substance: PHENYTOIN SODIUM
     Indication: EPILEPSY

REACTIONS (6)
  - Hyporeflexia [Unknown]
  - Coordination abnormal [Unknown]
  - Ataxia [Unknown]
  - Confusional state [Recovered/Resolved]
  - Loss of proprioception [Unknown]
  - Vasogenic cerebral oedema [Unknown]
